FAERS Safety Report 15486929 (Version 3)
Quarter: 2019Q2

REPORT INFORMATION
  Report Type: Spontaneous
  Country: JP (occurrence: JP)
  Receive Date: 20181011
  Receipt Date: 20190410
  Transmission Date: 20190711
  Serious: Yes (Hospitalization, Other)
  Sender: FDA-Public Use
  Company Number: JP-SUN PHARMACEUTICAL INDUSTRIES LTD-2018R1-187215

PATIENT
  Age: 37 Year
  Sex: Female

DRUGS (1)
  1. LEVONORGESTREL. [Suspect]
     Active Substance: LEVONORGESTREL
     Indication: ORAL CONTRACEPTION
     Dosage: UNK 1.5 MILLIGRAM
     Route: 048

REACTIONS (4)
  - Drug ineffective [Unknown]
  - Ectopic pregnancy under hormonal contraception [Unknown]
  - Pregnancy on oral contraceptive [Unknown]
  - Abdominal pain [Unknown]
